FAERS Safety Report 7433119-1 (Version None)
Quarter: 2011Q2

REPORT INFORMATION
  Report Type: 
  Country: None (occurrence: None)
  Receive Date: 20110422
  Receipt Date: 20110413
  Transmission Date: 20111010
  Serious: Yes (Hospitalization, Other)
  Sender: FDA-Public Use
  Company Number: JP-ASTRAZENECA-2008AP00367

PATIENT
  Sex: Male
  Weight: 9 kg

DRUGS (288)
  1. PULMICORT RESPULES [Suspect]
     Route: 055
     Dates: start: 20080710, end: 20080711
  2. INTAL [Concomitant]
     Dosage: AS REQUIRED, 1A/DAY
     Route: 055
     Dates: start: 20080213, end: 20100730
  3. MUCODYNE [Concomitant]
     Route: 048
     Dates: start: 20071022, end: 20071028
  4. BIOFERMIN R [Concomitant]
     Route: 048
     Dates: start: 20070831, end: 20070903
  5. BIOFERMIN R [Concomitant]
     Route: 048
     Dates: start: 20071206, end: 20080105
  6. BIOFERMIN R [Concomitant]
     Route: 048
     Dates: start: 20080914, end: 20080927
  7. BIOFERMIN R [Concomitant]
     Route: 048
     Dates: start: 20081014, end: 20081018
  8. BIOFERMIN R [Concomitant]
     Route: 048
     Dates: start: 20081104, end: 20081115
  9. BIOFERMIN R [Concomitant]
     Route: 048
     Dates: start: 20090223, end: 20090228
  10. BIOFERMIN R [Concomitant]
     Route: 048
     Dates: start: 20090408, end: 20090412
  11. BIOFERMIN R [Concomitant]
     Route: 048
     Dates: start: 20090408, end: 20090412
  12. BIOFERMIN R [Concomitant]
     Route: 048
     Dates: start: 20090518, end: 20090523
  13. BIOFERMIN R [Concomitant]
     Route: 048
     Dates: start: 20090518, end: 20090523
  14. BIOFERMIN R [Concomitant]
     Route: 048
     Dates: start: 20090811, end: 20090816
  15. MEIACT [Concomitant]
     Route: 048
     Dates: start: 20090111, end: 20090121
  16. MEIACT [Concomitant]
     Route: 048
     Dates: start: 20090111, end: 20090121
  17. KLARICID:DRYSYRUP [Concomitant]
     Route: 048
     Dates: start: 20071210, end: 20071217
  18. KLARICID:DRYSYRUP [Concomitant]
     Route: 048
     Dates: start: 20081114, end: 20090220
  19. KLARICID:DRYSYRUP [Concomitant]
     Route: 048
     Dates: start: 20100219, end: 20100223
  20. KLARICID:DRYSYRUP [Concomitant]
     Route: 048
     Dates: start: 20100726, end: 20100730
  21. MUCOSOLVAN DS FOR PEDIATRIC [Concomitant]
     Indication: ASTHMA
     Route: 048
     Dates: start: 20070709, end: 20070716
  22. MUCOSOLVAN DS FOR PEDIATRIC [Concomitant]
     Route: 048
     Dates: start: 20081006, end: 20081013
  23. AMOXICILLIN AND CLAVULANATE POTASSIUM [Concomitant]
     Route: 048
     Dates: start: 20081110, end: 20081110
  24. KN-3B [Concomitant]
     Route: 041
     Dates: start: 20080428, end: 20080502
  25. KN-3B [Concomitant]
     Route: 041
     Dates: start: 20081104, end: 20081110
  26. KN-3B [Concomitant]
     Route: 041
     Dates: start: 20090203, end: 20090205
  27. GLUCOSE [Concomitant]
     Indication: PROPHYLAXIS AGAINST DEHYDRATION
     Route: 041
     Dates: start: 20080914, end: 20080914
  28. SOLU-MEDROL [Concomitant]
     Indication: ASTHMA
     Route: 041
     Dates: start: 20080916, end: 20080921
  29. GASTER [Concomitant]
     Indication: REFLUX OESOPHAGITIS
     Route: 048
     Dates: start: 20091211
  30. VENTOLIN [Concomitant]
     Route: 055
     Dates: start: 20080428, end: 20080503
  31. INTAL [Concomitant]
     Route: 055
     Dates: start: 20081207, end: 20081212
  32. MUCODYNE [Concomitant]
     Route: 048
     Dates: start: 20081114
  33. MUCODYNE [Concomitant]
     Route: 048
     Dates: start: 20081114
  34. BIOFERMIN R [Concomitant]
     Route: 048
     Dates: start: 20070831, end: 20070903
  35. BIOFERMIN R [Concomitant]
     Route: 048
     Dates: start: 20070831, end: 20070903
  36. BIOFERMIN R [Concomitant]
     Route: 048
     Dates: start: 20080626, end: 20080629
  37. BIOFERMIN R [Concomitant]
     Route: 048
     Dates: start: 20080914, end: 20080927
  38. BIOFERMIN R [Concomitant]
     Route: 048
     Dates: start: 20090430, end: 20090504
  39. BIOFERMIN R [Concomitant]
     Route: 048
     Dates: start: 20090811, end: 20090816
  40. BIOFERMIN R [Concomitant]
     Route: 048
     Dates: start: 20090811, end: 20090816
  41. MEIACT [Concomitant]
     Indication: PNEUMONIA
     Route: 048
     Dates: start: 20070608, end: 20070613
  42. MEIACT [Concomitant]
     Indication: TONSILLITIS
     Route: 048
     Dates: start: 20070608, end: 20070613
  43. MEIACT [Concomitant]
     Route: 048
     Dates: start: 20071009, end: 20071012
  44. MEIACT [Concomitant]
     Route: 048
     Dates: start: 20071220, end: 20080107
  45. MEIACT [Concomitant]
     Route: 048
     Dates: start: 20080502, end: 20080507
  46. MEIACT [Concomitant]
     Route: 048
     Dates: start: 20080626, end: 20080629
  47. MEIACT [Concomitant]
     Route: 048
     Dates: start: 20080626, end: 20080629
  48. MEIACT [Concomitant]
     Route: 048
     Dates: start: 20090430, end: 20090504
  49. KLARICID:DRYSYRUP [Concomitant]
     Indication: BRONCHITIS
     Route: 048
     Dates: start: 20070613, end: 20070620
  50. KLARICID:DRYSYRUP [Concomitant]
     Route: 048
     Dates: start: 20071210, end: 20071217
  51. KLARICID:DRYSYRUP [Concomitant]
     Route: 048
     Dates: start: 20091022, end: 20091027
  52. HOKUNALIN:TAPE [Concomitant]
     Indication: ASTHMA
     Dosage: NUMBER OF SEPARATE DOSAGES UNKNOWN
     Route: 062
     Dates: start: 20070616, end: 20070627
  53. MUCOSOLVAN DS FOR PEDIATRIC [Concomitant]
     Route: 048
     Dates: start: 20071210, end: 20080117
  54. MUCOSOLVAN DS FOR PEDIATRIC [Concomitant]
     Route: 048
     Dates: start: 20080625, end: 20080629
  55. BERACHIN:SYRUP [Concomitant]
     Route: 048
     Dates: start: 20080418, end: 20080514
  56. KN-3B [Concomitant]
     Route: 041
     Dates: start: 20080107, end: 20080112
  57. KN-3B [Concomitant]
     Route: 041
     Dates: start: 20080205, end: 20080210
  58. ZADITEN [Concomitant]
     Indication: RHINITIS ALLERGIC
     Route: 048
     Dates: start: 20080227, end: 20080305
  59. SAWACILLIN [Concomitant]
     Indication: TONSILLITIS
     Route: 048
     Dates: start: 20080422, end: 20080428
  60. ONON DRYSYRUP [Concomitant]
     Route: 048
     Dates: start: 20080404
  61. INTAL [Concomitant]
     Route: 055
     Dates: start: 20080627, end: 20080627
  62. INTAL [Concomitant]
     Route: 055
     Dates: start: 20080914, end: 20080924
  63. MUCODYNE [Concomitant]
     Indication: OTITIS MEDIA
     Route: 048
     Dates: start: 20070604, end: 20070703
  64. BIOFERMIN R [Concomitant]
     Indication: ENTEROCOLITIS
     Route: 048
     Dates: start: 20070608, end: 20070620
  65. BIOFERMIN R [Concomitant]
     Route: 048
     Dates: start: 20070816, end: 20070823
  66. BIOFERMIN R [Concomitant]
     Route: 048
     Dates: start: 20080422, end: 20080507
  67. BIOFERMIN R [Concomitant]
     Route: 048
     Dates: start: 20100726, end: 20100730
  68. MEIACT [Concomitant]
     Route: 048
     Dates: start: 20071022, end: 20071028
  69. MEIACT [Concomitant]
     Route: 048
     Dates: start: 20071022, end: 20071028
  70. MEIACT [Concomitant]
     Route: 048
     Dates: start: 20071220, end: 20080107
  71. MEIACT [Concomitant]
     Route: 048
     Dates: start: 20080502, end: 20080507
  72. MEIACT [Concomitant]
     Route: 048
     Dates: start: 20090111, end: 20090121
  73. MEIACT [Concomitant]
     Route: 048
     Dates: start: 20090430, end: 20090504
  74. MEIACT [Concomitant]
     Route: 048
     Dates: start: 20090518, end: 20090523
  75. BOSMIN [Concomitant]
     Dosage: AS REQUIRED, 0.1 ML/DAY (MIXED WITH NORMAL SALINE 2 ML)
     Route: 055
     Dates: start: 20100729, end: 20100730
  76. TARIVID FOR OTIC USE [Concomitant]
     Indication: OTITIS MEDIA
     Route: 001
     Dates: start: 20070611, end: 20070618
  77. KLARICID:DRYSYRUP [Concomitant]
     Route: 048
     Dates: start: 20091022, end: 20091027
  78. KLARICID:DRYSYRUP [Concomitant]
     Route: 048
     Dates: start: 20100219, end: 20100223
  79. KLARICID:DRYSYRUP [Concomitant]
     Route: 048
     Dates: start: 20100726, end: 20100730
  80. MUCOSOLVAN DS FOR PEDIATRIC [Concomitant]
     Indication: BRONCHITIS
     Route: 048
     Dates: start: 20070709, end: 20070716
  81. MUCOSOLVAN DS FOR PEDIATRIC [Concomitant]
     Route: 048
     Dates: start: 20081024
  82. MUCOSOLVAN DS FOR PEDIATRIC [Concomitant]
     Route: 048
     Dates: start: 20090113, end: 20090123
  83. BERACHIN:SYRUP [Concomitant]
     Route: 048
     Dates: start: 20071012, end: 20071020
  84. BERACHIN:SYRUP [Concomitant]
     Route: 048
     Dates: start: 20080227, end: 20080315
  85. BERACHIN:SYRUP [Concomitant]
     Route: 048
     Dates: start: 20080625, end: 20080629
  86. BERACHIN:SYRUP [Concomitant]
     Route: 048
     Dates: start: 20090507, end: 20090831
  87. BERACHIN:SYRUP [Concomitant]
     Route: 048
     Dates: start: 20090507, end: 20090831
  88. BERACHIN:SYRUP [Concomitant]
     Route: 048
     Dates: start: 20090113, end: 20090123
  89. BERACHIN:SYRUP [Concomitant]
     Route: 048
     Dates: start: 20090113, end: 20090123
  90. SEISHOKU [Concomitant]
     Indication: PSEUDOCROUP
     Route: 041
     Dates: start: 20080714, end: 20080714
  91. SEISHOKU [Concomitant]
     Route: 041
     Dates: start: 20100729, end: 20100730
  92. AMOXICILLIN AND CLAVULANATE POTASSIUM [Concomitant]
     Route: 048
     Dates: start: 20091208, end: 20091215
  93. KN-3B [Concomitant]
     Route: 041
     Dates: start: 20081207, end: 20081211
  94. VENTOLIN [Concomitant]
     Route: 055
     Dates: start: 20080709, end: 20080711
  95. VENTOLIN [Concomitant]
     Route: 055
     Dates: start: 20081104, end: 20081111
  96. VENTOLIN [Concomitant]
     Route: 055
     Dates: start: 20081207, end: 20081212
  97. INTAL [Concomitant]
     Route: 055
     Dates: start: 20090403, end: 20090411
  98. MUCODYNE [Concomitant]
     Indication: ASTHMA
     Route: 048
     Dates: start: 20070604, end: 20070703
  99. BIOFERMIN R [Concomitant]
     Indication: DIARRHOEA
     Route: 048
     Dates: start: 20070608, end: 20070620
  100. BIOFERMIN R [Concomitant]
     Indication: PROPHYLAXIS AGAINST DIARRHOEA
     Route: 048
     Dates: start: 20070608, end: 20070620
  101. BIOFERMIN R [Concomitant]
     Route: 048
     Dates: start: 20070816, end: 20070823
  102. BIOFERMIN R [Concomitant]
     Route: 048
     Dates: start: 20070907, end: 20070913
  103. BIOFERMIN R [Concomitant]
     Route: 048
     Dates: start: 20070907, end: 20070913
  104. BIOFERMIN R [Concomitant]
     Route: 048
     Dates: start: 20071012, end: 20071016
  105. BIOFERMIN R [Concomitant]
     Route: 048
     Dates: start: 20071022, end: 20071028
  106. BIOFERMIN R [Concomitant]
     Route: 048
     Dates: start: 20080422, end: 20080507
  107. BIOFERMIN R [Concomitant]
     Route: 048
     Dates: start: 20080626, end: 20080629
  108. BIOFERMIN R [Concomitant]
     Route: 048
     Dates: start: 20090223, end: 20090228
  109. BIOFERMIN R [Concomitant]
     Route: 048
     Dates: start: 20090430, end: 20090504
  110. BIOFERMIN R [Concomitant]
     Route: 048
     Dates: start: 20090518, end: 20090523
  111. BIOFERMIN R [Concomitant]
     Route: 048
     Dates: start: 20090712, end: 20090722
  112. BIOFERMIN R [Concomitant]
     Route: 048
     Dates: start: 20091022, end: 20091027
  113. BIOFERMIN R [Concomitant]
     Route: 048
     Dates: start: 20100726, end: 20100730
  114. MEIACT [Concomitant]
     Route: 048
     Dates: start: 20090430, end: 20090504
  115. MEIACT [Concomitant]
     Route: 048
     Dates: start: 20090518, end: 20090523
  116. KLARICID:DRYSYRUP [Concomitant]
     Indication: PNEUMONIA
     Route: 048
     Dates: start: 20070613, end: 20070620
  117. KLARICID:DRYSYRUP [Concomitant]
     Indication: CHRONIC SINUSITIS
     Route: 048
     Dates: start: 20070613, end: 20070620
  118. KLARICID:DRYSYRUP [Concomitant]
     Route: 048
     Dates: start: 20071210, end: 20071217
  119. KLARICID:DRYSYRUP [Concomitant]
     Route: 048
     Dates: start: 20071210, end: 20071217
  120. KLARICID:DRYSYRUP [Concomitant]
     Route: 048
     Dates: start: 20100219, end: 20100223
  121. HOKUNALIN:TAPE [Concomitant]
     Route: 062
     Dates: start: 20080625, end: 20080629
  122. MUCOSOLVAN DS FOR PEDIATRIC [Concomitant]
     Route: 048
     Dates: start: 20071102, end: 20071203
  123. MUCOSOLVAN DS FOR PEDIATRIC [Concomitant]
     Route: 048
     Dates: start: 20090113, end: 20090123
  124. MUCOSOLVAN DS FOR PEDIATRIC [Concomitant]
     Route: 048
     Dates: start: 20090202, end: 20090209
  125. BERACHIN:SYRUP [Concomitant]
     Dosage: NUMBER OF SEPARATE DOSAGES UNKNOWN
     Route: 048
     Dates: start: 20090202, end: 20090209
  126. SEISHOKU [Concomitant]
     Indication: PROPHYLAXIS AGAINST DEHYDRATION
     Route: 041
     Dates: start: 20080714, end: 20080714
  127. SEISHOKU [Concomitant]
     Route: 041
     Dates: start: 20080914, end: 20080914
  128. AMOXICILLIN AND CLAVULANATE POTASSIUM [Concomitant]
     Indication: OTITIS MEDIA
     Route: 048
     Dates: start: 20070907, end: 20070913
  129. BESTRON [Concomitant]
     Indication: CONJUNCTIVITIS
     Dosage: OPTIMAL DOSE
     Route: 047
     Dates: start: 20090807, end: 20090812
  130. ZYRTEC [Concomitant]
     Indication: RHINITIS
     Route: 048
     Dates: start: 20090814, end: 20090821
  131. PULMICORT RESPULES [Suspect]
     Route: 055
     Dates: start: 20081125, end: 20081205
  132. PULMICORT RESPULES [Suspect]
     Route: 055
     Dates: start: 20090904, end: 20100608
  133. MEPTIN [Concomitant]
     Route: 055
     Dates: start: 20090302, end: 20100730
  134. VENTOLIN [Concomitant]
     Route: 055
     Dates: start: 20080627, end: 20080627
  135. VENTOLIN [Concomitant]
     Route: 055
     Dates: start: 20090403, end: 20090411
  136. BIOFERMIN R [Concomitant]
     Route: 048
     Dates: start: 20071022, end: 20071028
  137. BIOFERMIN R [Concomitant]
     Route: 048
     Dates: start: 20090712, end: 20090722
  138. MEIACT [Concomitant]
     Route: 048
     Dates: start: 20071009, end: 20071012
  139. MEIACT [Concomitant]
     Route: 048
     Dates: start: 20071022, end: 20071028
  140. MEIACT [Concomitant]
     Route: 048
     Dates: start: 20080626, end: 20080629
  141. MEIACT [Concomitant]
     Route: 048
     Dates: start: 20090518, end: 20090523
  142. TARIVID FOR OTIC USE [Concomitant]
     Route: 001
     Dates: start: 20071009, end: 20071012
  143. KLARICID:DRYSYRUP [Concomitant]
     Indication: TONSILLITIS
     Route: 048
     Dates: start: 20070613, end: 20070620
  144. KLARICID:DRYSYRUP [Concomitant]
     Route: 048
     Dates: start: 20071210, end: 20071217
  145. KLARICID:DRYSYRUP [Concomitant]
     Route: 048
     Dates: start: 20081114, end: 20090220
  146. KLARICID:DRYSYRUP [Concomitant]
     Route: 048
     Dates: start: 20091022, end: 20091027
  147. KLARICID:DRYSYRUP [Concomitant]
     Route: 048
     Dates: start: 20100726, end: 20100730
  148. MUCOSOLVAN DS FOR PEDIATRIC [Concomitant]
     Route: 048
     Dates: start: 20080227, end: 20080315
  149. MUCOSOLVAN DS FOR PEDIATRIC [Concomitant]
     Route: 048
     Dates: start: 20080625, end: 20080629
  150. MUCOSOLVAN DS FOR PEDIATRIC [Concomitant]
     Route: 048
     Dates: start: 20080711, end: 20080725
  151. MUCOSOLVAN DS FOR PEDIATRIC [Concomitant]
     Route: 048
     Dates: start: 20081024
  152. MUCOSOLVAN DS FOR PEDIATRIC [Concomitant]
     Route: 048
     Dates: start: 20090202, end: 20090209
  153. BERACHIN:SYRUP [Concomitant]
     Route: 048
     Dates: start: 20071102, end: 20071203
  154. BERACHIN:SYRUP [Concomitant]
     Route: 048
     Dates: start: 20080625, end: 20080629
  155. BERACHIN:SYRUP [Concomitant]
     Route: 048
     Dates: start: 20081006, end: 20081013
  156. SEISHOKU [Concomitant]
     Route: 041
     Dates: start: 20100729, end: 20100730
  157. KN-3B [Concomitant]
     Route: 041
     Dates: start: 20090403, end: 20090408
  158. SAWACILLIN [Concomitant]
     Route: 048
     Dates: start: 20090712, end: 20090722
  159. SAWACILLIN [Concomitant]
     Route: 048
     Dates: start: 20090712, end: 20090722
  160. BIOFERMIN [Concomitant]
     Indication: GASTROENTERITIS
     Route: 048
     Dates: start: 20090804, end: 20090809
  161. TRANSAMIN [Concomitant]
     Indication: UPPER RESPIRATORY TRACT INFLAMMATION
     Route: 048
     Dates: start: 20091019, end: 20091023
  162. OFLOXACIN [Concomitant]
     Indication: CONJUNCTIVITIS
     Dosage: OPTIMAL DOSE
     Route: 047
     Dates: start: 20100319, end: 20100324
  163. UNKNOWNDRUG [Concomitant]
     Indication: ASTHMA
     Dosage: 2L/MIN AS REQUIRED
     Route: 055
     Dates: start: 20080914, end: 20080921
  164. UNKNOWNDRUG [Concomitant]
     Dosage: 2L/MIN AS REQUIRED
     Route: 055
     Dates: start: 20081105, end: 20081105
  165. PULMICORT RESPULES [Suspect]
     Route: 055
     Dates: start: 20080920, end: 20080923
  166. ONON DRYSYRUP [Concomitant]
     Indication: ASTHMA
     Route: 048
     Dates: start: 20070604, end: 20070917
  167. MEPTIN [Concomitant]
     Indication: ASTHMA
     Route: 048
     Dates: start: 20070604, end: 20070703
  168. MEPTIN [Concomitant]
     Route: 055
     Dates: start: 20090302, end: 20100730
  169. INTAL [Concomitant]
     Route: 055
     Dates: start: 20070723, end: 20070724
  170. BIOFERMIN R [Concomitant]
     Route: 048
     Dates: start: 20071012, end: 20071016
  171. BIOFERMIN R [Concomitant]
     Route: 048
     Dates: start: 20071012, end: 20071016
  172. BIOFERMIN R [Concomitant]
     Route: 048
     Dates: start: 20071022, end: 20071028
  173. BIOFERMIN R [Concomitant]
     Route: 048
     Dates: start: 20080914, end: 20080927
  174. BIOFERMIN R [Concomitant]
     Route: 048
     Dates: start: 20081014, end: 20081018
  175. BIOFERMIN R [Concomitant]
     Route: 048
     Dates: start: 20081104, end: 20081115
  176. BIOFERMIN R [Concomitant]
     Route: 048
     Dates: start: 20081104, end: 20081115
  177. BIOFERMIN R [Concomitant]
     Route: 048
     Dates: start: 20090408, end: 20090412
  178. BIOFERMIN R [Concomitant]
     Route: 048
     Dates: start: 20091022, end: 20091027
  179. BIOFERMIN R [Concomitant]
     Route: 048
     Dates: start: 20100726, end: 20100730
  180. MEIACT [Concomitant]
     Indication: OTITIS MEDIA
     Route: 048
     Dates: start: 20070608, end: 20070613
  181. MEIACT [Concomitant]
     Indication: PHARYNGITIS
     Route: 048
     Dates: start: 20070608, end: 20070613
  182. MEIACT [Concomitant]
     Indication: BRONCHITIS
     Route: 048
     Dates: start: 20070608, end: 20070613
  183. MEIACT [Concomitant]
     Route: 048
     Dates: start: 20071022, end: 20071028
  184. MEIACT [Concomitant]
     Route: 048
     Dates: start: 20071022, end: 20071028
  185. MEIACT [Concomitant]
     Route: 048
     Dates: start: 20080502, end: 20080507
  186. MEIACT [Concomitant]
     Route: 048
     Dates: start: 20080626, end: 20080629
  187. KLARICID:DRYSYRUP [Concomitant]
     Indication: OTITIS MEDIA
     Route: 048
     Dates: start: 20070613, end: 20070620
  188. KLARICID:DRYSYRUP [Concomitant]
     Route: 048
     Dates: start: 20081114, end: 20090220
  189. KLARICID:DRYSYRUP [Concomitant]
     Route: 048
     Dates: start: 20100219, end: 20100223
  190. MUCOSOLVAN DS FOR PEDIATRIC [Concomitant]
     Route: 048
     Dates: start: 20071210, end: 20080117
  191. MUCOSOLVAN DS FOR PEDIATRIC [Concomitant]
     Route: 048
     Dates: start: 20080227, end: 20080315
  192. MUCOSOLVAN DS FOR PEDIATRIC [Concomitant]
     Route: 048
     Dates: start: 20080711, end: 20080725
  193. BERACHIN:SYRUP [Concomitant]
     Indication: BRONCHITIS
     Route: 048
     Dates: start: 20070709, end: 20070716
  194. BERACHIN:SYRUP [Concomitant]
     Route: 048
     Dates: start: 20071102, end: 20071203
  195. BERACHIN:SYRUP [Concomitant]
     Route: 048
     Dates: start: 20071210, end: 20080117
  196. BERACHIN:SYRUP [Concomitant]
     Route: 048
     Dates: start: 20080227, end: 20080315
  197. BERACHIN:SYRUP [Concomitant]
     Route: 048
     Dates: start: 20081024, end: 20081118
  198. SEISHOKU [Concomitant]
     Indication: ASTHMA
     Route: 041
     Dates: start: 20080714, end: 20080714
  199. SEISHOKU [Concomitant]
     Route: 041
     Dates: start: 20080914, end: 20080914
  200. ALPINY [Concomitant]
     Indication: PYREXIA
     Route: 054
     Dates: start: 20070810, end: 20070815
  201. SAWACILLIN [Concomitant]
     Indication: UPPER RESPIRATORY TRACT INFLAMMATION
     Route: 048
     Dates: start: 20080422, end: 20080428
  202. SAWACILLIN [Concomitant]
     Route: 048
     Dates: start: 20090223, end: 20090228
  203. VICCLOX [Concomitant]
     Indication: VARICELLA
     Route: 048
     Dates: start: 20081010, end: 20081017
  204. FLOMAX [Concomitant]
     Indication: OTITIS MEDIA ACUTE
     Route: 048
     Dates: start: 20081014, end: 20081018
  205. FLOMAX [Concomitant]
     Route: 048
     Dates: start: 20090811, end: 20090816
  206. PULMICORT RESPULES [Suspect]
     Indication: ASTHMA
     Route: 055
     Dates: start: 20070611, end: 20080203
  207. PULMICORT RESPULES [Suspect]
     Route: 055
     Dates: start: 20100609, end: 20100731
  208. ONON DRYSYRUP [Concomitant]
     Route: 048
     Dates: start: 20070918, end: 20071224
  209. MEPTIN [Concomitant]
     Indication: PNEUMONIA
     Route: 048
     Dates: start: 20070604, end: 20070703
  210. VENTOLIN [Concomitant]
     Route: 055
     Dates: start: 20070723, end: 20070724
  211. VENTOLIN [Concomitant]
     Route: 055
     Dates: start: 20080714, end: 20080714
  212. INTAL [Concomitant]
     Indication: ASTHMA
     Route: 055
     Dates: start: 20070604, end: 20070615
  213. MUCODYNE [Concomitant]
     Route: 048
     Dates: start: 20071022, end: 20071028
  214. MUCODYNE [Concomitant]
     Route: 048
     Dates: start: 20071022, end: 20071028
  215. BIOFERMIN R [Concomitant]
     Route: 048
     Dates: start: 20070816, end: 20070823
  216. BIOFERMIN R [Concomitant]
     Route: 048
     Dates: start: 20071009, end: 20071012
  217. BIOFERMIN R [Concomitant]
     Route: 048
     Dates: start: 20071206, end: 20080105
  218. BIOFERMIN R [Concomitant]
     Route: 048
     Dates: start: 20090223, end: 20090228
  219. BIOFERMIN R [Concomitant]
     Route: 048
     Dates: start: 20090430, end: 20090504
  220. BIOFERMIN R [Concomitant]
     Route: 048
     Dates: start: 20091022, end: 20091027
  221. MEIACT [Concomitant]
     Route: 048
     Dates: start: 20071009, end: 20071012
  222. MEIACT [Concomitant]
     Route: 048
     Dates: start: 20071220, end: 20080107
  223. MEIACT [Concomitant]
     Route: 048
     Dates: start: 20071220, end: 20080107
  224. MEIACT [Concomitant]
     Route: 048
     Dates: start: 20080502, end: 20080507
  225. MEIACT [Concomitant]
     Route: 048
     Dates: start: 20080626, end: 20080629
  226. MEIACT [Concomitant]
     Route: 048
     Dates: start: 20090430, end: 20090504
  227. MEIACT [Concomitant]
     Route: 048
     Dates: start: 20090518, end: 20090523
  228. BOSMIN [Concomitant]
     Indication: PSEUDOCROUP
     Route: 055
     Dates: start: 20070610, end: 20070618
  229. KLARICID:DRYSYRUP [Concomitant]
     Route: 048
     Dates: start: 20071210, end: 20071217
  230. KLARICID:DRYSYRUP [Concomitant]
     Route: 048
     Dates: start: 20081114, end: 20090220
  231. KLARICID:DRYSYRUP [Concomitant]
     Route: 048
     Dates: start: 20091022, end: 20091027
  232. KLARICID:DRYSYRUP [Concomitant]
     Route: 048
     Dates: start: 20091022, end: 20091027
  233. KLARICID:DRYSYRUP [Concomitant]
     Route: 048
     Dates: start: 20100726, end: 20100730
  234. KLARICID:DRYSYRUP [Concomitant]
     Route: 048
     Dates: start: 20100726, end: 20100730
  235. HOKUNALIN:TAPE [Concomitant]
     Dosage: NUMBER OF SEPARATE DOSAGES UNKNOWN
     Route: 062
     Dates: start: 20071102, end: 20071203
  236. MUCOSOLVAN DS FOR PEDIATRIC [Concomitant]
     Route: 048
     Dates: start: 20080418, end: 20080514
  237. BERACHIN:SYRUP [Concomitant]
     Indication: ASTHMA
     Route: 048
     Dates: start: 20070709, end: 20070716
  238. BERACHIN:SYRUP [Concomitant]
     Route: 048
     Dates: start: 20071012, end: 20071020
  239. BERACHIN:SYRUP [Concomitant]
     Route: 048
     Dates: start: 20071210, end: 20080117
  240. BERACHIN:SYRUP [Concomitant]
     Route: 048
     Dates: start: 20080711, end: 20080725
  241. BERACHIN:SYRUP [Concomitant]
     Route: 048
     Dates: start: 20080711, end: 20080725
  242. BERACHIN:SYRUP [Concomitant]
     Dosage: NUMBER OF SEPARATE DOSAGES UNKNOWN
     Route: 048
     Dates: start: 20090202, end: 20090209
  243. KN-3B [Concomitant]
     Indication: DEHYDRATION
     Route: 041
     Dates: start: 20071220, end: 20071228
  244. SAWACILLIN [Concomitant]
     Route: 048
     Dates: start: 20090223, end: 20090228
  245. FLOMAX [Concomitant]
     Route: 048
     Dates: start: 20090811, end: 20090816
  246. TAMIFLU:DRYSYRUP [Concomitant]
     Route: 048
     Dates: start: 20081204, end: 20081209
  247. VENTOLIN [Concomitant]
     Indication: ASTHMA
     Route: 055
     Dates: start: 20070604, end: 20070615
  248. VENTOLIN [Concomitant]
     Route: 055
     Dates: start: 20080914, end: 20080924
  249. INTAL [Concomitant]
     Route: 055
     Dates: start: 20080709, end: 20080711
  250. MUCODYNE [Concomitant]
     Indication: PNEUMONIA
     Route: 048
     Dates: start: 20070604, end: 20070703
  251. MUCODYNE [Concomitant]
     Route: 048
     Dates: start: 20081114
  252. BIOFERMIN R [Concomitant]
     Route: 048
     Dates: start: 20070907, end: 20070913
  253. BIOFERMIN R [Concomitant]
     Route: 048
     Dates: start: 20071009, end: 20071012
  254. BIOFERMIN R [Concomitant]
     Route: 048
     Dates: start: 20071009, end: 20071012
  255. BIOFERMIN R [Concomitant]
     Route: 048
     Dates: start: 20071206, end: 20080105
  256. BIOFERMIN R [Concomitant]
     Route: 048
     Dates: start: 20080422, end: 20080507
  257. BIOFERMIN R [Concomitant]
     Route: 048
     Dates: start: 20080626, end: 20080629
  258. BIOFERMIN R [Concomitant]
     Route: 048
     Dates: start: 20081014, end: 20081018
  259. BIOFERMIN R [Concomitant]
     Route: 048
     Dates: start: 20090712, end: 20090722
  260. MEIACT [Concomitant]
     Route: 048
     Dates: start: 20071009, end: 20071012
  261. MEIACT [Concomitant]
     Route: 048
     Dates: start: 20071009, end: 20071012
  262. MEIACT [Concomitant]
     Route: 048
     Dates: start: 20071220, end: 20080107
  263. MEIACT [Concomitant]
     Route: 048
     Dates: start: 20080502, end: 20080507
  264. MEIACT [Concomitant]
     Route: 048
     Dates: start: 20090111, end: 20090121
  265. MEIACT [Concomitant]
     Route: 048
     Dates: start: 20090111, end: 20090121
  266. MEIACT [Concomitant]
     Route: 048
     Dates: start: 20090430, end: 20090504
  267. MEIACT [Concomitant]
     Route: 048
     Dates: start: 20090518, end: 20090523
  268. KLARICID:DRYSYRUP [Concomitant]
     Indication: UPPER RESPIRATORY TRACT INFLAMMATION
     Route: 048
     Dates: start: 20070613, end: 20070620
  269. KLARICID:DRYSYRUP [Concomitant]
     Route: 048
     Dates: start: 20081114, end: 20090220
  270. KLARICID:DRYSYRUP [Concomitant]
     Route: 048
     Dates: start: 20081114, end: 20090220
  271. KLARICID:DRYSYRUP [Concomitant]
     Route: 048
     Dates: start: 20091022, end: 20091027
  272. KLARICID:DRYSYRUP [Concomitant]
     Route: 048
     Dates: start: 20100219, end: 20100223
  273. KLARICID:DRYSYRUP [Concomitant]
     Route: 048
     Dates: start: 20100219, end: 20100223
  274. KLARICID:DRYSYRUP [Concomitant]
     Route: 048
     Dates: start: 20100726, end: 20100730
  275. MUCOSOLVAN DS FOR PEDIATRIC [Concomitant]
     Route: 048
     Dates: start: 20071102, end: 20071203
  276. MUCOSOLVAN DS FOR PEDIATRIC [Concomitant]
     Route: 048
     Dates: start: 20080418, end: 20080514
  277. MUCOSOLVAN DS FOR PEDIATRIC [Concomitant]
     Route: 048
     Dates: start: 20081006, end: 20081013
  278. BERACHIN:SYRUP [Concomitant]
     Route: 048
     Dates: start: 20080418, end: 20080514
  279. BERACHIN:SYRUP [Concomitant]
     Route: 048
     Dates: start: 20081006, end: 20081013
  280. BERACHIN:SYRUP [Concomitant]
     Route: 048
     Dates: start: 20081024, end: 20081118
  281. SEISHOKU [Concomitant]
     Route: 041
     Dates: start: 20080914, end: 20080914
  282. SEISHOKU [Concomitant]
     Route: 041
     Dates: start: 20100729, end: 20100730
  283. ALPINY [Concomitant]
     Route: 054
     Dates: start: 20071022, end: 20071026
  284. KIPRES [Concomitant]
     Indication: ASTHMA
     Route: 048
     Dates: start: 20071225, end: 20080325
  285. FLOMAX [Concomitant]
     Indication: BRONCHITIS
     Route: 048
     Dates: start: 20081014, end: 20081018
  286. CLAFORAN [Concomitant]
     Indication: PNEUMONIA
     Route: 041
     Dates: start: 20081104, end: 20081110
  287. CLAFORAN [Concomitant]
     Route: 041
     Dates: start: 20081207, end: 20081211
  288. NEUZYM [Concomitant]
     Indication: UPPER RESPIRATORY TRACT INFLAMMATION
     Route: 048
     Dates: start: 20091019, end: 20091028

REACTIONS (10)
  - BRONCHITIS [None]
  - SINUSITIS [None]
  - CROUP INFECTIOUS [None]
  - GASTROENTERITIS [None]
  - RHINITIS [None]
  - REFLUX OESOPHAGITIS [None]
  - PNEUMONIA [None]
  - CONJUNCTIVITIS [None]
  - GASTROOESOPHAGEAL REFLUX DISEASE [None]
  - ACUTE TONSILLITIS [None]
